FAERS Safety Report 6199570-5 (Version None)
Quarter: 2009Q2

REPORT INFORMATION
  Report Type: 
  Country: None (occurrence: None)
  Receive Date: 20090522
  Receipt Date: 20090515
  Transmission Date: 20091009
  Serious: Yes (Life-Threatening)
  Sender: FDA-Public Use
  Company Number: B0569964A

PATIENT
  Sex: Male
  Weight: 40 kg

DRUGS (9)
  1. RELENZA [Suspect]
     Indication: INFLUENZA
     Dosage: 10MG TWICE PER DAY
     Route: 055
     Dates: start: 20090410, end: 20090410
  2. CLARITHROMYCIN [Concomitant]
     Indication: BRONCHITIS
     Dosage: 200MG TWICE PER DAY
     Route: 048
     Dates: start: 20090409, end: 20090412
  3. CALONAL [Concomitant]
     Indication: ANTIPYRESIS
     Route: 048
     Dates: start: 20090409, end: 20090410
  4. ZESULAN [Concomitant]
     Dosage: 3MG TWICE PER DAY
     Route: 048
     Dates: start: 20090409, end: 20090416
  5. FLAVERIC [Concomitant]
     Indication: BRONCHITIS
     Dosage: 20MG THREE TIMES PER DAY
     Route: 048
     Dates: start: 20090409, end: 20090416
  6. MUCODYNE [Concomitant]
     Indication: BRONCHITIS
     Dosage: 500MG THREE TIMES PER DAY
     Route: 048
     Dates: start: 20090409, end: 20090416
  7. BROCIN [Concomitant]
     Indication: BRONCHITIS
     Route: 048
     Dates: start: 20090410
  8. HUSCODE [Concomitant]
     Indication: DRUG USE FOR UNKNOWN INDICATION
     Route: 048
     Dates: start: 20090410
  9. CELESTAMINE [Concomitant]
     Indication: BRONCHITIS
     Route: 048
     Dates: start: 20090409, end: 20090416

REACTIONS (6)
  - ABNORMAL BEHAVIOUR [None]
  - DEPRESSED LEVEL OF CONSCIOUSNESS [None]
  - LOSS OF CONSCIOUSNESS [None]
  - MUSCLE RIGIDITY [None]
  - MUSCULOSKELETAL STIFFNESS [None]
  - STARING [None]
